FAERS Safety Report 4604539-5 (Version None)
Quarter: 2005Q1

REPORT INFORMATION
  Report Type: 
  Country: None (occurrence: None)
  Receive Date: 20050223
  Receipt Date: 20041217
  Transmission Date: 20050727
  Serious: No
  Sender: FDA-Public Use
  Company Number: PHEH2004US13486

PATIENT
  Sex: Female

DRUGS (1)
  1. ZELNORM [Suspect]
     Dates: start: 20031201

REACTIONS (5)
  - ANXIETY [None]
  - CONDITION AGGRAVATED [None]
  - FATIGUE [None]
  - MALAISE [None]
  - SOMNOLENCE [None]
